FAERS Safety Report 8814407 (Version 1)
Quarter: 2012Q4

REPORT INFORMATION
  Report Type: 
  Country: BR (occurrence: BR)
  Receive Date: 20120928
  Receipt Date: 20120928
  Transmission Date: 20130627
  Serious: Yes (Other)
  Sender: FDA-Public Use
  Company Number: BR-PFIZER INC-2012237736

PATIENT
  Sex: Female

DRUGS (4)
  1. LYRICA [Suspect]
     Indication: SPINAL PAIN
     Dosage: 75 mg, 1x/day
     Route: 048
     Dates: start: 20120913, end: 20120920
  2. ACETYLSALICYLIC ACID [Concomitant]
     Dosage: UNK
     Dates: start: 20110111
  3. ATENOLOL [Concomitant]
     Dosage: UNK
     Dates: start: 20110111
  4. SIMVASTATIN [Concomitant]
     Dosage: UNK
     Dates: start: 20110111

REACTIONS (8)
  - Oedema peripheral [Unknown]
  - Abdominal distension [Unknown]
  - Breast swelling [Unknown]
  - Breast pain [Unknown]
  - Chest pain [Unknown]
  - Swelling [Unknown]
  - Pain [Unknown]
  - Drug ineffective [Unknown]
